FAERS Safety Report 6381578-8 (Version None)
Quarter: 2009Q3

REPORT INFORMATION
  Report Type: 
  Country: None (occurrence: None)
  Receive Date: 20090925
  Receipt Date: 20090911
  Transmission Date: 20100115
  Serious: Yes (Hospitalization)
  Sender: FDA-Public Use
  Company Number: DSU-2009-01645

PATIENT
  Age: 74 Year
  Sex: Female
  Weight: 57 kg

DRUGS (3)
  1. OLMESARTAN MEDOXOMIL [Suspect]
     Indication: HYPERTENSION
     Dosage: 40 MG (40 MG, QD) PER ORAL
     Route: 048
     Dates: start: 20090813, end: 20090101
  2. MERFOMRIN (MERFORMIN) (TABLET) (METFORMIN) [Concomitant]
  3. GLIMEPIRIDE (GLIMEPIRIDE) (TABLET) (GLIMEPIRIDE) [Concomitant]

REACTIONS (5)
  - BLOOD PRESSURE INADEQUATELY CONTROLLED [None]
  - DRUG ADMINISTRATION ERROR [None]
  - HYPERTENSION [None]
  - MYOCARDIAL INFARCTION [None]
  - TACHYCARDIA [None]
